FAERS Safety Report 6046744-X (Version None)
Quarter: 2009Q1

REPORT INFORMATION
  Report Type: 
  Country: None (occurrence: None)
  Receive Date: 20090122
  Receipt Date: 20090115
  Transmission Date: 20090719
  Serious: Yes (Hospitalization)
  Sender: FDA-Public Use
  Company Number: FR-AMGEN-UK328523

PATIENT
  Sex: Male

DRUGS (9)
  1. NEUPOGEN [Suspect]
     Indication: DRUG USE FOR UNKNOWN INDICATION
  2. PLITICAN [Suspect]
     Route: 042
     Dates: start: 20080508, end: 20080508
  3. ZOPHREN [Suspect]
     Route: 042
     Dates: start: 20080508, end: 20080508
  4. INNOHEP [Suspect]
     Dates: start: 20080425
  5. ZAMADOL [Suspect]
     Dates: start: 20080427, end: 20080507
  6. CYCLOPHOSPHAMIDE [Concomitant]
     Dates: start: 20080428
  7. DOXORUBICIN HYDROCHLORIDE [Concomitant]
     Dates: start: 20080428
  8. PREDNISOLONE [Concomitant]
     Dates: start: 20080428
  9. VINCRISTINE [Concomitant]
     Dates: start: 20080428

REACTIONS (1)
  - TRANSAMINASES INCREASED [None]
